APPROVED DRUG PRODUCT: METHYLPREDNISOLONE
Active Ingredient: METHYLPREDNISOLONE
Strength: 4MG
Dosage Form/Route: TABLET;ORAL
Application: A088497 | Product #001
Applicant: DURAMED PHARMACEUTICALS INC SUB BARR LABORATORIES INC
Approved: Feb 21, 1984 | RLD: No | RS: No | Type: DISCN